FAERS Safety Report 21470382 (Version 4)
Quarter: 2023Q2

REPORT INFORMATION
  Report Type: Spontaneous
  Country: US (occurrence: US)
  Receive Date: 20221018
  Receipt Date: 20230518
  Transmission Date: 20230722
  Serious: No
  Sender: FDA-Public Use
  Company Number: US-BRISTOL-MYERS SQUIBB COMPANY-2022-122390

PATIENT
  Age: 70 Year
  Sex: Female
  Weight: 146.96 kg

DRUGS (2)
  1. POMALYST [Suspect]
     Active Substance: POMALIDOMIDE
     Indication: Plasma cell myeloma
     Dosage: DAILY 21 DAYS ON 7 DAYS OFF.
     Route: 048
     Dates: start: 20200924
  2. POMALYST [Suspect]
     Active Substance: POMALIDOMIDE
     Dosage: DAILY 21 DAYS ON 7 DAYS OFF.
     Route: 048
     Dates: start: 20200904

REACTIONS (6)
  - Peripheral swelling [Recovering/Resolving]
  - Skin discolouration [Recovering/Resolving]
  - Haematoma [Recovered/Resolved]
  - Product dose omission issue [Unknown]
  - Blood potassium decreased [Not Recovered/Not Resolved]
  - Wound dehiscence [Unknown]
